FAERS Safety Report 6473745-X (Version None)
Quarter: 2009Q4

REPORT INFORMATION
  Report Type: 
  Country: None (occurrence: None)
  Receive Date: 20091204
  Receipt Date: 20091204
  Transmission Date: 20100525
  Serious: Yes (Other)
  Sender: FDA-Public Use
  Company Number: FR-JNJFOC-20091108092

PATIENT
  Age: 70 Year
  Sex: Female

DRUGS (6)
  1. RISPERDAL [Suspect]
     Indication: MANIA
     Route: 065
  2. DEPAKOTE [Concomitant]
     Route: 065
  3. FRAXODI [Concomitant]
     Route: 065
  4. FENOFIBRATE [Concomitant]
     Route: 065
  5. COAPROVEL [Concomitant]
     Route: 065
  6. FEMARA [Concomitant]
     Route: 065

REACTIONS (3)
  - LYMPHOPENIA [None]
  - THROMBOCYTOPENIA [None]
  - WHITE BLOOD CELL COUNT DECREASED [None]
